FAERS Safety Report 6084552-4 (Version None)
Quarter: 2009Q1

REPORT INFORMATION
  Report Type: 
  Country: None (occurrence: None)
  Receive Date: 20090211
  Receipt Date: 20081117
  Transmission Date: 20090719
  Serious: Yes (Hospitalization)
  Sender: FDA-Public Use
  Company Number: ALK_00709_2008

PATIENT
  Sex: Female
  Weight: 56.6996 kg

DRUGS (4)
  1. VIVITROL [Suspect]
     Indication: ALCOHOLISM
     Dosage: (380 MG 1X/MONTH INTRAMUSCULAR)
     Route: 030
     Dates: start: 20080924, end: 20080924
  2. PAXIL [Concomitant]
  3. TEGRETOL [Concomitant]
  4. EFFERSOL [Concomitant]

REACTIONS (2)
  - ALCOHOL WITHDRAWAL SYNDROME [None]
  - WITHDRAWAL SYNDROME [None]
